FAERS Safety Report 11560306 (Version 2)
Quarter: 2015Q4

REPORT INFORMATION
  Report Type: Spontaneous
  Country: CH (occurrence: CH)
  Receive Date: 20150928
  Receipt Date: 20151001
  Transmission Date: 20160304
  Serious: No
  Sender: FDA-Public Use
  Company Number: CH-JNJFOC-20150913709

PATIENT
  Sex: Male

DRUGS (1)
  1. DUROGESIC [Suspect]
     Active Substance: FENTANYL
     Indication: BACK PAIN
     Dosage: 100 UG/HR * 2 AND 25UG/HR (1X)
     Route: 062

REACTIONS (3)
  - Overdose [Unknown]
  - Frequent bowel movements [Unknown]
  - Inappropriate schedule of drug administration [Unknown]
